FAERS Safety Report 6309631-5 (Version None)
Quarter: 2009Q3

REPORT INFORMATION
  Report Type: 
  Country: None (occurrence: None)
  Receive Date: 20090814
  Receipt Date: 20090806
  Transmission Date: 20100115
  Serious: Yes (Other)
  Sender: FDA-Public Use
  Company Number: GB-NOVOPROD-290249

PATIENT
  Age: 51 Year
  Sex: Female

DRUGS (5)
  1. NOVOMIX 30 [Suspect]
     Indication: DIABETES MELLITUS
     Dosage: UNK, UNK
     Route: 058
     Dates: start: 20090625, end: 20090714
  2. METFORMIN HCL [Concomitant]
     Dosage: 500 MG, QID
     Route: 048
  3. NAPROSYN [Concomitant]
     Dosage: 500 MG, QD
     Route: 048
  4. SIMVASTATIN [Concomitant]
     Dosage: 10 MG, BID
     Route: 048
  5. ZYDOL                              /00599202/ [Concomitant]
     Dosage: 200 MG, BID
     Route: 048

REACTIONS (4)
  - DIABETES MELLITUS INADEQUATE CONTROL [None]
  - DRUG INEFFECTIVE [None]
  - HYPERHIDROSIS [None]
  - PRURITUS [None]
